FAERS Safety Report 21770433 (Version 2)
Quarter: 2022Q4

REPORT INFORMATION
  Report Type: Report from Study
  Country: PR (occurrence: PR)
  Receive Date: 20221223
  Receipt Date: 20221230
  Transmission Date: 20230112
  Serious: Yes (Other)
  Sender: FDA-Public Use
  Company Number: PR-ABBVIE-4245215

PATIENT
  Sex: Male
  Weight: 77 kg

DRUGS (10)
  1. HUMIRA [Suspect]
     Active Substance: ADALIMUMAB
     Indication: Crohn^s disease
     Dosage: 40MG/0.8ML
     Route: 058
     Dates: start: 201501
  2. IMODIUM [Concomitant]
     Active Substance: LOPERAMIDE HYDROCHLORIDE
     Indication: Antidiarrhoeal supportive care
     Route: 048
     Dates: start: 2014
  3. AMLODIPINE [Concomitant]
     Active Substance: AMLODIPINE BESYLATE
     Indication: Blood pressure increased
     Dosage: START DATE TEXT: MORE THAN 5 YEARS
     Route: 048
  4. ENALAPRIL [Concomitant]
     Active Substance: ENALAPRIL
     Indication: Blood pressure increased
     Dosage: START DATE TEXT: MORE THAN 5 YEARS
     Route: 048
  5. FAMOTIDINE [Concomitant]
     Active Substance: FAMOTIDINE
     Indication: Antacid therapy
     Dosage: START DATE TEXT: MORE THAN 5 YEARS
     Route: 048
  6. VITAMIN C [Concomitant]
     Active Substance: ASCORBIC ACID
     Indication: Vitamin supplementation
     Dosage: START DATE TEXT: MORE THAN 5 YEARS
     Route: 048
  7. Covid-19 Vaccine [Concomitant]
     Indication: COVID-19 immunisation
     Dosage: 1ST DOSE/ONCE IN ONCE
     Route: 030
  8. Covid-19 Vaccine [Concomitant]
     Indication: COVID-19 immunisation
     Dosage: 2ND DOSE/ONCE IN ONCE
     Route: 030
  9. Covid-19 Vaccine [Concomitant]
     Indication: COVID-19 immunisation
     Dosage: 4TH DOSE/ONCE IN ONCE
     Route: 030
  10. Covid-19 Vaccine [Concomitant]
     Indication: COVID-19 immunisation
     Dosage: 3RD DOSE/ONCE IN ONCE
     Route: 030

REACTIONS (1)
  - Calculus bladder [Not Recovered/Not Resolved]
